FAERS Safety Report 13033266 (Version 3)
Quarter: 2017Q1

REPORT INFORMATION
  Report Type: Spontaneous
  Country: IT (occurrence: IT)
  Receive Date: 20161216
  Receipt Date: 20170104
  Transmission Date: 20170428
  Serious: Yes (Life-Threatening, Hospitalization)
  Sender: FDA-Public Use
  Company Number: IT-BAXTER-2016BAX062382

PATIENT
  Age: 65 Year
  Sex: Male

DRUGS (18)
  1. ENDOXAN BAXTER [Suspect]
     Active Substance: CYCLOPHOSPHAMIDE
     Indication: MALIGNANT NEOPLASM PROGRESSION
     Route: 042
     Dates: start: 2012
  2. RITUXIMAB [Suspect]
     Active Substance: RITUXIMAB
     Indication: MALIGNANT NEOPLASM PROGRESSION
     Route: 065
     Dates: start: 2012
  3. PREDNISONE. [Suspect]
     Active Substance: PREDNISONE
     Indication: CHRONIC LYMPHOCYTIC LEUKAEMIA
     Dosage: SUBSEQUENT TAPERING OVER 3 MONTH PERIOD
     Route: 065
     Dates: start: 2014, end: 2014
  4. METHYLPREDNISOLONE ACETATE. [Suspect]
     Active Substance: METHYLPREDNISOLONE ACETATE
     Indication: HAEMOLYTIC ANAEMIA
     Dosage: HIGH DOSE
     Route: 065
     Dates: start: 2014
  5. ENDOXAN BAXTER [Suspect]
     Active Substance: CYCLOPHOSPHAMIDE
     Indication: CHRONIC LYMPHOCYTIC LEUKAEMIA
  6. RITUXIMAB [Suspect]
     Active Substance: RITUXIMAB
     Indication: CHRONIC LYMPHOCYTIC LEUKAEMIA
  7. FLUDARABINE [Suspect]
     Active Substance: FLUDARABINE PHOSPHATE
     Indication: CHRONIC LYMPHOCYTIC LEUKAEMIA
  8. METHYLPREDNISOLONE ACETATE. [Suspect]
     Active Substance: METHYLPREDNISOLONE ACETATE
     Indication: MALIGNANT NEOPLASM PROGRESSION
  9. METHYLPREDNISOLONE ACETATE. [Suspect]
     Active Substance: METHYLPREDNISOLONE ACETATE
     Indication: DISEASE RECURRENCE
  10. PREDNISONE. [Suspect]
     Active Substance: PREDNISONE
     Indication: MALIGNANT NEOPLASM PROGRESSION
     Dosage: DISCONTINUED AFTER 4 WEEKS
     Route: 065
     Dates: start: 2014, end: 2014
  11. METHYLPREDNISOLONE ACETATE. [Suspect]
     Active Substance: METHYLPREDNISOLONE ACETATE
     Indication: CHRONIC LYMPHOCYTIC LEUKAEMIA
  12. IVIG [Suspect]
     Active Substance: HUMAN IMMUNOGLOBULIN G
     Indication: CHRONIC LYMPHOCYTIC LEUKAEMIA
  13. FLUDARABINE [Suspect]
     Active Substance: FLUDARABINE PHOSPHATE
     Indication: MALIGNANT NEOPLASM PROGRESSION
     Route: 065
     Dates: start: 2012
  14. IVIG [Suspect]
     Active Substance: HUMAN IMMUNOGLOBULIN G
     Indication: HAEMOLYTIC ANAEMIA
     Dosage: DAY 3-4, REPEATED DAY 42-43
     Route: 042
     Dates: start: 2014
  15. IVIG [Suspect]
     Active Substance: HUMAN IMMUNOGLOBULIN G
     Indication: MALIGNANT NEOPLASM PROGRESSION
  16. BENDAMUSTINE [Suspect]
     Active Substance: BENDAMUSTINE
     Indication: CHRONIC LYMPHOCYTIC LEUKAEMIA
     Dosage: TOTAL OF 6 CYCLES
     Route: 065
     Dates: start: 2012
  17. BENDAMUSTINE [Suspect]
     Active Substance: BENDAMUSTINE
     Indication: MALIGNANT NEOPLASM PROGRESSION
  18. IVIG [Suspect]
     Active Substance: HUMAN IMMUNOGLOBULIN G
     Indication: DISEASE RECURRENCE

REACTIONS (4)
  - Haemolysis [Recovered/Resolved]
  - Anaemia [Recovered/Resolved]
  - Autoimmune haemolytic anaemia [Recovered/Resolved]
  - Drug ineffective [Unknown]

NARRATIVE: CASE EVENT DATE: 2012
